FAERS Safety Report 7919559-2 (Version None)
Quarter: 2011Q4

REPORT INFORMATION
  Report Type: 
  Country: None (occurrence: None)
  Receive Date: 20111116
  Receipt Date: 20111116
  Transmission Date: 20120403
  Serious: Yes (Hospitalization)
  Sender: FDA-Public Use
  Company Number: None

PATIENT
  Age: 87 Year
  Sex: Male
  Weight: 80.5 kg

DRUGS (18)
  1. PRADAXA [Suspect]
     Indication: ATRIAL FIBRILLATION
     Dosage: UNCONFIRMED BID PO
     Route: 048
  2. TOPROL-XL [Concomitant]
  3. LASIX [Concomitant]
  4. NIACIN [Concomitant]
  5. CALCIUM CARBONATE [Concomitant]
  6. VISION FORMULA [Concomitant]
  7. FOLIC ACID [Concomitant]
  8. MELATONIN [Concomitant]
  9. METAMUCIL-2 [Concomitant]
  10. PRILOSEC [Concomitant]
  11. SELENIUM [Concomitant]
  12. COENZYME [Concomitant]
  13. TYLENOL-500 [Concomitant]
  14. VITAMIN D [Concomitant]
  15. GLUCOSAMINE [Concomitant]
  16. M.V.I. [Concomitant]
  17. TYLENOL ES [Concomitant]
  18. VITAMIN B-12 [Concomitant]

REACTIONS (4)
  - OCCULT BLOOD POSITIVE [None]
  - MELAENA [None]
  - HAEMORRHOIDS [None]
  - DIVERTICULUM INTESTINAL [None]
